FAERS Safety Report 4581084-7 (Version None)
Quarter: 2005Q1

REPORT INFORMATION
  Report Type: 
  Country: None (occurrence: None)
  Receive Date: 20050214
  Receipt Date: 20040803
  Transmission Date: 20050727
  Serious: No
  Sender: FDA-Public Use
  Company Number: US-GLAXOSMITHKLINE-A0520730A

PATIENT
  Age: 15 Year
  Sex: Female

DRUGS (4)
  1. LAMICTAL [Suspect]
     Indication: EPILEPSY
     Dosage: 700MG PER DAY
     Route: 048
  2. EFFEXOR [Concomitant]
  3. GABITRIL [Concomitant]
  4. BIRTH CONTROL [Concomitant]

REACTIONS (1)
  - SLEEP APNOEA SYNDROME [None]
